FAERS Safety Report 15110487 (Version 1)
Quarter: 2018Q2

REPORT INFORMATION
  Report Type: Spontaneous
  Country: US (occurrence: US)
  Receive Date: 20180612
  Receipt Date: 20180612
  Transmission Date: 20180711
  Serious: No
  Sender: FDA-Public Use
  Company Number: None

PATIENT
  Age: 65 Year
  Sex: Male

DRUGS (1)
  1. ENBREL [Suspect]
     Active Substance: ETANERCEPT
     Indication: PSORIATIC ARTHROPATHY
     Route: 058
     Dates: start: 20161206

REACTIONS (4)
  - Inability to afford medication [None]
  - Psoriatic arthropathy [None]
  - Inappropriate schedule of drug administration [None]
  - Insurance issue [None]

NARRATIVE: CASE EVENT DATE: 20180401
